FAERS Safety Report 18476969 (Version 1)
Quarter: 2020Q4

REPORT INFORMATION
  Report Type: Spontaneous
  Country: US (occurrence: US)
  Receive Date: 20201107
  Receipt Date: 20201107
  Transmission Date: 20210114
  Serious: No
  Sender: FDA-Public Use
  Company Number: US-SA-2020SA309255

PATIENT

DRUGS (1)
  1. LANTUS SOLOSTAR [Suspect]
     Active Substance: INSULIN GLARGINE
     Dosage: 30 IU, QD (IN MORNING)
     Route: 065
     Dates: start: 201912

REACTIONS (2)
  - Localised infection [Unknown]
  - Amputation [Unknown]

NARRATIVE: CASE EVENT DATE: 201912
